FAERS Safety Report 7251470-5 (Version None)
Quarter: 2011Q1

REPORT INFORMATION
  Report Type: 
  Country: None (occurrence: None)
  Receive Date: 20110128
  Receipt Date: 20110120
  Transmission Date: 20110831
  Serious: Yes (Hospitalization, Other)
  Sender: FDA-Public Use
  Company Number: PHEH2006US04718

PATIENT
  Sex: Female
  Weight: 81.632 kg

DRUGS (73)
  1. AREDIA [Suspect]
     Indication: BONE CANCER METASTATIC
     Dosage: UNK, QMO
     Dates: start: 20020221, end: 20051201
  2. FEMARA [Suspect]
     Indication: BREAST CANCER
     Dosage: UNK
     Dates: start: 20020201
  3. METHYLPREDNISOLONE [Concomitant]
  4. PENICILLIN VK [Concomitant]
  5. LEVSIN [Concomitant]
  6. DEXAMETHASONE [Concomitant]
  7. VITAMIN E [Concomitant]
     Dosage: 1000 IU, QD
     Route: 048
  8. CEPHALEXIN [Concomitant]
  9. CHANTIX [Concomitant]
  10. HYDROCODONE BITARTRATE AND ACETAMINOPHEN [Concomitant]
  11. CALCIUM CITRATE [Concomitant]
  12. METOPROLOL [Concomitant]
     Dosage: 50 MG, BID
  13. CLINDAMYCIN [Concomitant]
     Indication: OSTEOMYELITIS
     Dosage: 900MG, EVERY Q 8HR
     Route: 042
  14. HEPARIN [Concomitant]
     Indication: OSTEOMYELITIS
     Dosage: 100 UNITS/ML
     Route: 042
  15. PROMETHAZINE [Concomitant]
  16. CIPROFLOXACIN [Concomitant]
  17. LEVAQUIN [Concomitant]
  18. PERIOGARD [Concomitant]
  19. TYLENOL-500 [Concomitant]
  20. LORATADINE [Concomitant]
  21. HABITROL [Concomitant]
  22. SELENIUM [Concomitant]
  23. CLARINEX /USA/ [Concomitant]
  24. LEXAPRO [Concomitant]
  25. CLARITIN [Concomitant]
  26. CHLORHEXIDINE GLUCONATE [Concomitant]
  27. MOBIC [Concomitant]
     Dosage: UNK
  28. CYCLOBENZAPRINE [Concomitant]
  29. RADIATION [Concomitant]
  30. FENTANYL [Concomitant]
  31. CELEXA [Concomitant]
  32. ALLEGRA [Concomitant]
  33. BICITRA                            /00586801/ [Concomitant]
  34. LODRANE [Concomitant]
  35. TAXOTERE [Concomitant]
  36. ZOMETA [Suspect]
     Indication: METASTASES TO BONE
     Dosage: UNK, QMO
     Dates: start: 20030101
  37. ASCORBIC ACID [Concomitant]
  38. THERATOPE [Concomitant]
     Dosage: UNK
  39. HYDROCODONE [Concomitant]
  40. FLUCONAZOLE [Concomitant]
  41. REGLAN [Concomitant]
  42. FLONASE [Concomitant]
     Dosage: UNK
  43. VICODIN [Concomitant]
  44. AMBIEN [Concomitant]
  45. CEFTAZIDIME [Concomitant]
     Indication: OSTEOMYELITIS
     Dosage: 2 G, Q8 HR
     Route: 042
  46. NASONEX [Concomitant]
  47. ULTRAM [Concomitant]
  48. AMOXICILLIN [Concomitant]
  49. MULTI-VITAMINS [Concomitant]
  50. CLEOCIN [Concomitant]
  51. SOLU-MEDROL [Concomitant]
  52. CYMBALTA [Concomitant]
  53. LUNESTA [Concomitant]
  54. CALCIUM [Concomitant]
  55. NORCO [Concomitant]
  56. SYNTHROID [Concomitant]
     Dosage: 0.112 MG, UNK
  57. OXYCONTIN [Concomitant]
  58. PERIDEX [Concomitant]
     Dosage: UNK
  59. VITAMIN D [Concomitant]
  60. VITAMIN B COMPLEX [Concomitant]
  61. MOXIFLOXACIN [Concomitant]
  62. AMITRIPTYLINE HYDROCHLORIDE [Concomitant]
  63. MS CONTIN [Concomitant]
  64. CELEBREX [Concomitant]
     Dosage: 200 MG, BID
  65. WELLBUTRIN [Concomitant]
  66. PROTONIX [Concomitant]
  67. XANAX [Concomitant]
  68. LOVAZA [Concomitant]
  69. COQ10 [Concomitant]
  70. SODIUM CHLORIDE [Concomitant]
     Indication: OSTEOMYELITIS
     Dosage: 0.9%,
  71. ZYRTEC [Concomitant]
  72. COMPAZINE [Concomitant]
  73. OXYCODONE HCL [Concomitant]

REACTIONS (89)
  - RADICULOPATHY [None]
  - CERVICAL SPINE FLATTENING [None]
  - INJURY [None]
  - GINGIVAL RECESSION [None]
  - OSTEOARTHRITIS [None]
  - ORAL NEOPLASM [None]
  - NAUSEA [None]
  - CERVICAL SPINAL STENOSIS [None]
  - PERIODONTITIS [None]
  - ATELECTASIS [None]
  - LOWER RESPIRATORY TRACT INFECTION [None]
  - SPUTUM PURULENT [None]
  - DYSPNOEA EXERTIONAL [None]
  - RED BLOOD CELL COUNT DECREASED [None]
  - BONE DENSITY DECREASED [None]
  - EDENTULOUS [None]
  - DRY MOUTH [None]
  - LACRIMATION INCREASED [None]
  - LUNG CONSOLIDATION [None]
  - INTERVERTEBRAL DISC DEGENERATION [None]
  - HYPONATRAEMIA [None]
  - DEVICE RELATED SEPSIS [None]
  - CANDIDIASIS [None]
  - ANXIETY [None]
  - FALL [None]
  - INTERVERTEBRAL DISC COMPRESSION [None]
  - SPINAL OSTEOARTHRITIS [None]
  - DECREASED APPETITE [None]
  - BONE MARROW NECROSIS [None]
  - OSTEOMYELITIS [None]
  - VERTEBRAL FORAMINAL STENOSIS [None]
  - PERICARDIAL EFFUSION [None]
  - CONSTIPATION [None]
  - TREMOR [None]
  - ARTHRALGIA [None]
  - BONE DISORDER [None]
  - DEVICE FAILURE [None]
  - DENTURE WEARER [None]
  - PNEUMOTHORAX [None]
  - CELLULITIS [None]
  - LYMPHOEDEMA [None]
  - OEDEMA PERIPHERAL [None]
  - METASTASES TO LUNG [None]
  - EMOTIONAL DISTRESS [None]
  - TOOTH LOSS [None]
  - TOOTH FRACTURE [None]
  - ALOPECIA [None]
  - PYREXIA [None]
  - HYPERKALAEMIA [None]
  - DEEP VEIN THROMBOSIS [None]
  - HEPATOMEGALY [None]
  - SCOLIOSIS [None]
  - ADENOCARCINOMA [None]
  - LUNG DISORDER [None]
  - NEOPLASM MALIGNANT [None]
  - METASTASES TO BONE [None]
  - METASTASES TO CENTRAL NERVOUS SYSTEM [None]
  - GINGIVAL SWELLING [None]
  - OSTEOSCLEROSIS [None]
  - TENOSYNOVITIS STENOSANS [None]
  - PATHOLOGICAL FRACTURE [None]
  - KERATOCONJUNCTIVITIS SICCA [None]
  - INGROWN HAIR [None]
  - COUGH [None]
  - FIBROSIS [None]
  - GASTROOESOPHAGEAL REFLUX DISEASE [None]
  - AORTIC ARTERIOSCLEROSIS [None]
  - JOINT INJURY [None]
  - BONE PAIN [None]
  - MALIGNANT PLEURAL EFFUSION [None]
  - OSTEONECROSIS OF JAW [None]
  - DEPRESSION [None]
  - FATIGUE [None]
  - TOOTH ABSCESS [None]
  - PULMONARY FIBROSIS [None]
  - AORTIC CALCIFICATION [None]
  - AMAUROSIS FUGAX [None]
  - HAND-FOOT-AND-MOUTH DISEASE [None]
  - INSOMNIA [None]
  - METASTASES TO LIVER [None]
  - NECK PAIN [None]
  - PAIN [None]
  - HYPOAESTHESIA [None]
  - NASAL CONGESTION [None]
  - VENTRICULAR HYPERTROPHY [None]
  - INTERVERTEBRAL DISC PROTRUSION [None]
  - PLATELET COUNT INCREASED [None]
  - PROTEIN TOTAL INCREASED [None]
  - MONOCYTE COUNT DECREASED [None]
